FAERS Safety Report 21652013 (Version 1)
Quarter: 2022Q4

REPORT INFORMATION
  Report Type: Spontaneous
  Country: US (occurrence: None)
  Receive Date: 20221125
  Receipt Date: 20221125
  Transmission Date: 20230112
  Serious: Yes (Other)
  Sender: FDA-Public Use
  Company Number: None

PATIENT
  Age: 57 Year
  Sex: Female
  Weight: 78.75 kg

DRUGS (2)
  1. EMGALITY [Suspect]
     Active Substance: GALCANEZUMAB-GNLM
     Indication: Migraine
     Dosage: OTHER FREQUENCY : 1 TIME A MONTH INJ;?OTHER ROUTE : INJECTION;?
     Route: 050
     Dates: start: 20220201, end: 20220810
  2. Basaglar insulin Jardiance omneprazole [Concomitant]

REACTIONS (4)
  - Pyrexia [None]
  - Asthenia [None]
  - Nausea [None]
  - Weight decreased [None]

NARRATIVE: CASE EVENT DATE: 20220622
